FAERS Safety Report 17868054 (Version 2)
Quarter: 2020Q2

REPORT INFORMATION
  Report Type: Spontaneous
  Country: RO (occurrence: RO)
  Receive Date: 20200605
  Receipt Date: 20200617
  Transmission Date: 20200714
  Serious: Yes (Death, Other)
  Sender: FDA-Public Use
  Company Number: RO-PFIZER INC-2020212383

PATIENT
  Age: 63 Year
  Sex: Female

DRUGS (12)
  1. TROPICAMIDE. [Concomitant]
     Active Substance: TROPICAMIDE
     Indication: POLYCHONDRITIS
     Dosage: 1 % (3 GUT/DAY)
     Route: 061
  2. TIMOLOL. [Concomitant]
     Active Substance: TIMOLOL
     Indication: POLYCHONDRITIS
     Dosage: 0.5 % (2 GUT/DAY)
  3. TOBRAMYCIN. [Concomitant]
     Active Substance: TOBRAMYCIN
     Indication: POLYCHONDRITIS
     Dosage: 3 MG, UNK
     Route: 061
  4. CYCLOPHOSPHAMIDE. [Suspect]
     Active Substance: CYCLOPHOSPHAMIDE
     Indication: POLYCHONDRITIS
     Dosage: 15 MG/KG (6 PULSES)
     Route: 042
  5. OFLOXACIN. [Concomitant]
     Active Substance: OFLOXACIN
     Indication: POLYCHONDRITIS
     Dosage: 0.3 % (3 GUT/DAY)
     Route: 061
  6. METHYLPREDNISOLONE. [Suspect]
     Active Substance: METHYLPREDNISOLONE
     Dosage: 1 MG/KG, 1X/DAY, (ONE MONTH WITH TAPERING)
     Route: 048
  7. CICLOSPORIN [Suspect]
     Active Substance: CYCLOSPORINE
     Indication: DRY EYE
     Dosage: 1 MG, 1X/DAY (1 GTT/DAY)
     Route: 042
  8. LEFLUNOMIDE. [Suspect]
     Active Substance: LEFLUNOMIDE
     Indication: POLYCHONDRITIS
     Dosage: 20 MG, 1X/DAY
  9. INFLIXIMAB [Suspect]
     Active Substance: INFLIXIMAB
     Indication: POLYCHONDRITIS
     Dosage: 3 MG/KG, UNK (A SINGLE INFUSION)
     Route: 041
  10. CYCLOPHOSPHAMIDE. [Suspect]
     Active Substance: CYCLOPHOSPHAMIDE
     Dosage: UNK
     Route: 048
  11. AZATHIOPRINE. [Suspect]
     Active Substance: AZATHIOPRINE
     Indication: POLYCHONDRITIS
     Dosage: UNK
  12. DEXAMETHASONE. [Concomitant]
     Active Substance: DEXAMETHASONE
     Indication: POLYCHONDRITIS
     Dosage: 1 MG (5 GUT/DAY)
     Route: 061

REACTIONS (9)
  - Cardio-respiratory arrest [Fatal]
  - Drug intolerance [Unknown]
  - Diarrhoea [Recovering/Resolving]
  - Product use in unapproved indication [Unknown]
  - Hypertension [Unknown]
  - Renal failure [Unknown]
  - Escherichia sepsis [Recovering/Resolving]
  - Drug ineffective [Unknown]
  - Off label use [Unknown]
